FAERS Safety Report 5653305-0 (Version None)
Quarter: 2008Q1

REPORT INFORMATION
  Report Type: 
  Country: None (occurrence: None)
  Receive Date: 20080306
  Receipt Date: 20080227
  Transmission Date: 20080703
  Serious: Yes (Other)
  Sender: FDA-Public Use
  Company Number: B0405137A

PATIENT
  Sex: Male

DRUGS (1)
  1. NIQUITIN CQ 2MG LOZENGE [Suspect]
     Dosage: 15LOZ PER DAY
     Route: 002

REACTIONS (3)
  - DEPENDENCE [None]
  - DIARRHOEA [None]
  - DRUG ABUSE [None]
